FAERS Safety Report 5130111-7 (Version None)
Quarter: 2006Q4

REPORT INFORMATION
  Report Type: 
  Country: None (occurrence: None)
  Receive Date: 20061013
  Receipt Date: 20060928
  Transmission Date: 20070319
  Serious: Yes (Death)
  Sender: FDA-Public Use
  Company Number: GB200609000585

PATIENT
  Age: 66 Year
  Sex: Male
  Weight: 84.8 kg

DRUGS (9)
  1. ZYPREXA [Suspect]
     Indication: BIPOLAR DISORDER
     Dosage: 20 MG, ORAL
     Route: 048
     Dates: start: 20060801
  2. DEPAKOTE [Concomitant]
  3. SIMVASTATIN [Concomitant]
  4. LANSOPRAZOLE [Concomitant]
  5. ASPIRIN [Concomitant]
  6. GLICLAZIDE [Concomitant]
  7. BENDROFLUMETHIAZIDE [Concomitant]
  8. TRAMADOL HCL [Concomitant]
  9. MEBEVERINE [Concomitant]

REACTIONS (5)
  - CARDIAC FAILURE [None]
  - DIABETES MELLITUS [None]
  - DISINHIBITION [None]
  - HYDRONEPHROSIS [None]
  - MYOCARDIAL ISCHAEMIA [None]
